FAERS Safety Report 24705814 (Version 1)
Quarter: 2024Q4

REPORT INFORMATION
  Report Type: Spontaneous
  Country: US (occurrence: US)
  Receive Date: 20241206
  Receipt Date: 20241206
  Transmission Date: 20250115
  Serious: No
  Sender: DR REDDYS
  Company Number: US-DRL-USA-SPO/USA/24/0017942

PATIENT
  Age: 45 Year
  Sex: Male

DRUGS (1)
  1. ZENATANE [Suspect]
     Active Substance: ISOTRETINOIN
     Indication: Product used for unknown indication
     Dosage: (ISOTRETINOIN CAPSULES, USP) CAPSULES  40 MG - DRL BOX OF 30 (3X10)
     Route: 065

REACTIONS (1)
  - Tinnitus [Unknown]
